FAERS Safety Report 10659710 (Version 2)
Quarter: 2015Q2

REPORT INFORMATION
  Report Type: Spontaneous
  Country: US (occurrence: US)
  Receive Date: 20141217
  Receipt Date: 20150514
  Transmission Date: 20150821
  Serious: Yes (Hospitalization, Other)
  Sender: FDA-Public Use
  Company Number: US-PFIZER INC-2014345098

PATIENT
  Age: 44 Year
  Sex: Male

DRUGS (6)
  1. DELATESTRYL [Suspect]
     Active Substance: TESTOSTERONE ENANTHATE
     Indication: HORMONE REPLACEMENT THERAPY
  2. ZOLOFT [Concomitant]
     Active Substance: SERTRALINE HYDROCHLORIDE
     Indication: DEPRESSION
     Dosage: UNK
     Dates: start: 2000
  3. LEVOTHYROXIN [Concomitant]
     Active Substance: LEVOTHYROXINE
     Indication: THYROID DISORDER
     Dosage: UNK
     Dates: start: 1999
  4. DEPO-TESTOSTERONE [Suspect]
     Active Substance: TESTOSTERONE CYPIONATE
     Indication: BLOOD TESTOSTERONE DECREASED
     Dosage: UNK, AS DIRECTED, EVERY 14-30 DAYS
     Dates: start: 2004, end: 201404
  5. DEPO-TESTOSTERONE [Suspect]
     Active Substance: TESTOSTERONE CYPIONATE
     Indication: HORMONE REPLACEMENT THERAPY
  6. DELATESTRYL [Suspect]
     Active Substance: TESTOSTERONE ENANTHATE
     Indication: BLOOD TESTOSTERONE DECREASED
     Dosage: UNK, AS DIRECTED, EVERY 14-30 DAYS
     Dates: start: 2004, end: 201404

REACTIONS (3)
  - Coronary artery disease [Not Recovered/Not Resolved]
  - Myocardial infarction [Unknown]
  - Asthenia [Not Recovered/Not Resolved]

NARRATIVE: CASE EVENT DATE: 201112
